FAERS Safety Report 13752867 (Version 1)
Quarter: 2017Q3

REPORT INFORMATION
  Report Type: Spontaneous
  Country: US (occurrence: US)
  Receive Date: 20170713
  Receipt Date: 20170713
  Transmission Date: 20171127
  Serious: Yes (Life-Threatening, Hospitalization, Disabling, Other)
  Sender: FDA-Public Use
  Company Number: None

PATIENT
  Age: 78 Year
  Sex: Female

DRUGS (1)
  1. ACTEMRA [Suspect]
     Active Substance: TOCILIZUMAB
     Indication: POLYMYALGIA RHEUMATICA

REACTIONS (7)
  - Acetabulum fracture [None]
  - Impacted fracture [None]
  - Pain [None]
  - Fractured sacrum [None]
  - Osteopenia [None]
  - Bacterial sepsis [None]
  - Gait inability [None]

NARRATIVE: CASE EVENT DATE: 20170420
